FAERS Safety Report 7339598-2 (Version None)
Quarter: 2011Q1

REPORT INFORMATION
  Report Type: 
  Country: None (occurrence: None)
  Receive Date: 20110308
  Receipt Date: 20110305
  Transmission Date: 20110831
  Serious: Yes (Death, Life-Threatening, Hospitalization, Other)
  Sender: FDA-Public Use
  Company Number: AT-ABBOTT-11P-009-0706380-00

PATIENT
  Age: 46 Year
  Sex: Male
  Weight: 61.5 kg

DRUGS (10)
  1. FOSRENOL [Concomitant]
     Indication: HYPERPARATHYROIDISM
     Dosage: 3 PER DAY
     Route: 048
     Dates: end: 20110204
  2. ACEMIN [Concomitant]
     Indication: HYPERPARATHYROIDISM
     Dosage: 1 PER DAY
     Route: 048
     Dates: end: 20110204
  3. RENVELA [Concomitant]
     Indication: HYPERPARATHYROIDISM
     Dosage: 6 PER DAY
     Route: 048
     Dates: end: 20110204
  4. MOXONIBENE [Concomitant]
     Indication: HYPERPARATHYROIDISM
     Dosage: 1.5 PER DAY
     Route: 048
     Dates: end: 20110204
  5. NEXIUM [Concomitant]
     Indication: HYPERPARATHYROIDISM
     Dosage: 1 PER DAY
     Route: 048
     Dates: end: 20110204
  6. ZEMPLAR [Suspect]
     Indication: HYPERPARATHYROIDISM
     Dates: start: 20101231, end: 20110204
  7. CARENAL [Concomitant]
     Indication: HYPERPARATHYROIDISM
     Dosage: 1 PER DAY
     Route: 048
     Dates: end: 20110204
  8. ANTI-PHOSPAT [Concomitant]
     Indication: HYPERPARATHYROIDISM
     Dosage: 6 PER DAY
     Route: 048
     Dates: end: 20110204
  9. DILATREND [Concomitant]
     Indication: HYPERPARATHYROIDISM
     Dosage: 2 PER DAY
     Route: 048
     Dates: end: 20110204
  10. ZANIDIP [Concomitant]
     Indication: HYPERPARATHYROIDISM
     Dosage: 2 PER DAY
     Route: 048
     Dates: end: 20110204

REACTIONS (2)
  - HYPERTENSION [None]
  - CEREBRAL HAEMORRHAGE [None]
